FAERS Safety Report 8595767 (Version 3)
Quarter: 2013Q4

REPORT INFORMATION
  Report Type: Spontaneous
  Country: US (occurrence: US)
  Receive Date: 20120605
  Receipt Date: 20131125
  Transmission Date: 20140711
  Serious: Yes (Death)
  Sender: FDA-Public Use
  Company Number: US-ASTRAZENECA-2012SE34748

PATIENT
  Age: 46 Year
  Sex: Female
  Weight: 83.9 kg

DRUGS (2)
  1. NEXIUM [Suspect]
     Indication: GASTROOESOPHAGEAL REFLUX DISEASE
     Dosage: TWO TIMES DAY
     Route: 048
  2. PRILOSEC [Suspect]
     Route: 048

REACTIONS (9)
  - Dyskinesia [Fatal]
  - Cardio-respiratory arrest [Fatal]
  - Hypertension [Fatal]
  - Diabetes mellitus [Fatal]
  - Renal failure [Fatal]
  - Multiple fractures [Unknown]
  - Osteoporosis [Unknown]
  - Foot fracture [Unknown]
  - Loss of consciousness [Unknown]
